FAERS Safety Report 16765386 (Version 1)
Quarter: 2019Q3

REPORT INFORMATION
  Report Type: Spontaneous
  Country: US (occurrence: US)
  Receive Date: 20190903
  Receipt Date: 20190903
  Transmission Date: 20191005
  Serious: No
  Sender: FDA-Public Use
  Company Number: US-009507513-1909USA000600

PATIENT
  Age: 66 Year
  Sex: Female

DRUGS (2)
  1. KEYTRUDA [Suspect]
     Active Substance: PEMBROLIZUMAB
     Dosage: 14TH CYCLE
  2. ALIMTA [Suspect]
     Active Substance: PEMETREXED DISODIUM
     Route: 042

REACTIONS (2)
  - Urticaria [Unknown]
  - Dyspnoea [Unknown]
